FAERS Safety Report 7915687-6 (Version None)
Quarter: 2011Q4

REPORT INFORMATION
  Report Type: 
  Country: None (occurrence: None)
  Receive Date: 20111115
  Receipt Date: 20111109
  Transmission Date: 20120403
  Serious: Yes (Hospitalization)
  Sender: FDA-Public Use
  Company Number: US-GLAXOSMITHKLINE-A0952485A

PATIENT
  Age: 70 Year
  Sex: Male

DRUGS (4)
  1. SYNTHROID [Concomitant]
  2. PROZAC [Concomitant]
  3. VALTREX [Suspect]
     Indication: HERPES ZOSTER
     Dosage: 1G THREE TIMES PER DAY
     Route: 048
     Dates: start: 20111104, end: 20111109
  4. LOVAZA [Concomitant]

REACTIONS (3)
  - HERPES ZOSTER [None]
  - MEMORY IMPAIRMENT [None]
  - CONFUSIONAL STATE [None]
